FAERS Safety Report 7504348-3 (Version None)
Quarter: 2011Q2

REPORT INFORMATION
  Report Type: 
  Country: None (occurrence: None)
  Receive Date: 20110525
  Receipt Date: 20110415
  Transmission Date: 20111010
  Serious: Yes (Death, Other)
  Sender: FDA-Public Use
  Company Number: US-BAXTER-2010BH002559

PATIENT
  Age: 81 Year
  Sex: Male

DRUGS (2)
  1. HEPARIN SODIUM INJECTION [Suspect]
     Indication: PRODUCT USED FOR UNKNOWN INDICATION
     Route: 042
     Dates: start: 20080101, end: 20080204
  2. HEPARIN SODIUM 1,000 UNITS AND SODIUM CHLORIDE 0.9% [Suspect]
     Indication: PRODUCT USED FOR UNKNOWN INDICATION
     Route: 041
     Dates: start: 20080101, end: 20080204

REACTIONS (13)
  - SEPSIS [None]
  - RENAL FAILURE [None]
  - HYPERTENSION [None]
  - ABDOMINAL DISTENSION [None]
  - GENERAL PHYSICAL HEALTH DETERIORATION [None]
  - GASTROINTESTINAL INFECTION [None]
  - FAILURE TO THRIVE [None]
  - HYPOTENSION [None]
  - POST PROCEDURAL COMPLICATION [None]
  - DYSPNOEA [None]
  - MEGACOLON [None]
  - PROCEDURAL COMPLICATION [None]
  - DECREASED APPETITE [None]
